FAERS Safety Report 13497782 (Version 1)
Quarter: 2017Q2

REPORT INFORMATION
  Report Type: Report from Study
  Country: US (occurrence: US)
  Receive Date: 20170428
  Receipt Date: 20170428
  Transmission Date: 20170830
  Serious: Yes (Death, Hospitalization, Other)
  Sender: FDA-Public Use
  Company Number: US-PFIZER INC-9317

PATIENT
  Age: 75 Year
  Sex: Female

DRUGS (9)
  1. ATENOLOL. [Suspect]
     Active Substance: ATENOLOL
     Dosage: 25 MG, DAILY
     Route: 065
  2. TRICOR [Suspect]
     Active Substance: FENOFIBRATE
     Dosage: 54 MG, BID
     Route: 065
  3. NEURONTIN [Suspect]
     Active Substance: GABAPENTIN
     Dosage: 300 MG, FREQ UNK
     Route: 065
     Dates: start: 20030509
  4. METHOTREXATE SODIUM. [Suspect]
     Active Substance: METHOTREXATE SODIUM
     Indication: RHEUMATOID ARTHRITIS
     Dosage: 25 MG, WEEKLY
     Route: 058
     Dates: start: 19930505
  5. DARVOCET-N 100 [Suspect]
     Active Substance: ACETAMINOPHEN\PROPOXYPHENE NAPSYLATE
     Route: 065
  6. BUMEX [Suspect]
     Active Substance: BUMETANIDE
     Dosage: 1 MG, DAILY
     Route: 065
  7. REMICADE [Suspect]
     Active Substance: INFLIXIMAB
     Dosage: 3 MG/KG, FREQ UNK
     Route: 042
     Dates: start: 20020510, end: 20030618
  8. FOLIC ACID. [Suspect]
     Active Substance: FOLIC ACID
     Dosage: 1 MG, DAILY
     Route: 065
     Dates: start: 19930505
  9. PREDNISONE. [Suspect]
     Active Substance: PREDNISONE
     Dosage: 20 MG, 2X/DAY
     Route: 065
     Dates: start: 20030618

REACTIONS (4)
  - Death [Fatal]
  - Guillain-Barre syndrome [Fatal]
  - Lung infection [Recovered/Resolved]
  - Intestinal perforation [Unknown]

NARRATIVE: CASE EVENT DATE: 2003
